FAERS Safety Report 14945214 (Version 48)
Quarter: 2025Q1

REPORT INFORMATION
  Report Type: Report from Study
  Country: DE (occurrence: DE)
  Receive Date: 20180529
  Receipt Date: 20250304
  Transmission Date: 20250408
  Serious: Yes (Hospitalization, Other)
  Sender: ROCHE
  Company Number: DE-ROCHE-2121184

PATIENT
  Age: 56 Year
  Sex: Female

DRUGS (42)
  1. OCREVUS [Suspect]
     Active Substance: OCRELIZUMAB
     Indication: Relapsing-remitting multiple sclerosis
     Route: 042
     Dates: start: 20180503, end: 20180503
  2. OCREVUS [Suspect]
     Active Substance: OCRELIZUMAB
     Indication: Secondary progressive multiple sclerosis
     Route: 042
     Dates: start: 20180517, end: 20180517
  3. OCREVUS [Suspect]
     Active Substance: OCRELIZUMAB
     Dosage: NEXT DOSE ON 09/JUN/2020
     Route: 042
     Dates: start: 20181106
  4. OCREVUS [Suspect]
     Active Substance: OCRELIZUMAB
     Route: 042
     Dates: start: 20200609
  5. OCREVUS [Suspect]
     Active Substance: OCRELIZUMAB
     Route: 042
     Dates: start: 20201207
  6. OCREVUS [Suspect]
     Active Substance: OCRELIZUMAB
     Route: 042
     Dates: end: 20210629
  7. OCREVUS [Suspect]
     Active Substance: OCRELIZUMAB
     Route: 042
     Dates: start: 20230801
  8. OCREVUS [Suspect]
     Active Substance: OCRELIZUMAB
     Route: 042
  9. AMITRIPTYLINE [Suspect]
     Active Substance: AMITRIPTYLINE
     Indication: Depression
     Dosage: 0-0-1
     Route: 065
  10. AMITRIPTYLINE [Suspect]
     Active Substance: AMITRIPTYLINE
     Route: 065
  11. DICLOFENAC [Suspect]
     Active Substance: DICLOFENAC
     Indication: Back pain
     Route: 048
  12. DICLOFENAC [Suspect]
     Active Substance: DICLOFENAC
     Indication: Sacral pain
     Route: 054
  13. ACYCLOVIR [Concomitant]
     Active Substance: ACYCLOVIR
  14. ACYCLOVIR [Concomitant]
     Active Substance: ACYCLOVIR
  15. BUDESONIDE [Concomitant]
     Active Substance: BUDESONIDE
     Dosage: 2 HUBS PER DAY
  16. BACLOFEN [Concomitant]
     Active Substance: BACLOFEN
     Indication: Muscle spasticity
  17. BACLOFEN [Concomitant]
     Active Substance: BACLOFEN
     Dosage: 15 MG - 15 MG - 25 MG
     Route: 048
  18. BACLOFEN [Concomitant]
     Active Substance: BACLOFEN
     Dosage: 10 MG - 15 MG - 25 MG
  19. BACLOFEN [Concomitant]
     Active Substance: BACLOFEN
     Dosage: 10 MG - 15 MG - 25 MG
  20. BACLOFEN [Concomitant]
     Active Substance: BACLOFEN
     Dosage: 10 MG - 5 MG - 20 MG
  21. BACLOFEN [Concomitant]
     Active Substance: BACLOFEN
     Dosage: 2-2-3
  22. BACLOFEN [Concomitant]
     Active Substance: BACLOFEN
  23. PANTOPRAZOLE SODIUM [Concomitant]
     Active Substance: PANTOPRAZOLE SODIUM
     Dosage: 1-0-0
     Route: 048
  24. CARBAMAZEPINE [Concomitant]
     Active Substance: CARBAMAZEPINE
     Dosage: 1-0-0
     Route: 048
  25. CARBAMAZEPINE [Concomitant]
     Active Substance: CARBAMAZEPINE
     Dosage: 2-0-1
     Dates: start: 20190801
  26. CARBAMAZEPINE [Concomitant]
     Active Substance: CARBAMAZEPINE
     Dosage: 0-1-0
  27. SELENIUM [Concomitant]
     Active Substance: SELENIUM
  28. MAGNESIUM [Concomitant]
     Active Substance: MAGNESIUM
     Indication: Muscle spasms
     Dosage: 0-1-0
  29. ZINC [Concomitant]
     Active Substance: ZINC
  30. RAMIPRIL [Concomitant]
     Active Substance: RAMIPRIL
     Indication: Hypertension
     Dosage: 1-0-0
  31. RAMIPRIL [Concomitant]
     Active Substance: RAMIPRIL
     Dosage: 1-0-1
  32. FOLIC ACID [Concomitant]
     Active Substance: FOLIC ACID
  33. BACLOFENUM [Concomitant]
     Indication: Muscle spasticity
     Route: 065
  34. BACLOFENUM [Concomitant]
     Route: 048
  35. BACLOFENUM [Concomitant]
     Dosage: 75 MG, QD
     Route: 065
  36. BACLOFENUM [Concomitant]
     Route: 048
  37. BOTOX [Concomitant]
     Active Substance: ONABOTULINUMTOXINA
  38. FOLIC ACID [Concomitant]
     Active Substance: FOLIC ACID
  39. ASPIRIN [Concomitant]
     Active Substance: ASPIRIN
     Route: 048
  40. CHOLECALCIFEROL [Concomitant]
     Active Substance: CHOLECALCIFEROL
     Indication: Vitamin D deficiency
  41. BISACODYL [Concomitant]
     Active Substance: BISACODYL
  42. METHYLPREDNISOLONE [Concomitant]
     Active Substance: METHYLPREDNISOLONE
     Route: 042

REACTIONS (59)
  - Sacroiliitis [Recovered/Resolved]
  - Headache [Recovered/Resolved]
  - Infusion related reaction [Recovered/Resolved]
  - Nausea [Recovered/Resolved]
  - Norovirus infection [Recovered/Resolved]
  - Dyspepsia [Not Recovered/Not Resolved]
  - Pruritus [Recovered/Resolved]
  - Sleep disorder [Recovering/Resolving]
  - Migraine [Recovered/Resolved]
  - Infrapatellar fat pad inflammation [Not Recovered/Not Resolved]
  - Rash [Recovered/Resolved]
  - Paraesthesia [Recovered/Resolved]
  - Multiple sclerosis [Not Recovered/Not Resolved]
  - Spinal stenosis [Not Recovered/Not Resolved]
  - Dyspnoea [Not Recovered/Not Resolved]
  - Back pain [Recovered/Resolved]
  - Muscle spasticity [Not Recovered/Not Resolved]
  - Skin laceration [Recovered/Resolved]
  - Memory impairment [Recovered/Resolved]
  - Meniscus injury [Recovered/Resolved]
  - Therapeutic product effect decreased [Recovered/Resolved]
  - Feeling abnormal [Not Recovered/Not Resolved]
  - Acquired diaphragmatic eventration [Not Recovered/Not Resolved]
  - Abdominal pain upper [Recovered/Resolved]
  - Effusion [Not Recovered/Not Resolved]
  - Nasopharyngitis [Not Recovered/Not Resolved]
  - C-reactive protein increased [Recovering/Resolving]
  - Sacral pain [Recovering/Resolving]
  - Insomnia [Recovered/Resolved]
  - Neuralgia [Recovered/Resolved]
  - Sensory disturbance [Recovered/Resolved]
  - White blood cell count decreased [Not Recovered/Not Resolved]
  - Urticaria [Recovered/Resolved]
  - Terminal insomnia [Recovering/Resolving]
  - Chondropathy [Not Recovered/Not Resolved]
  - Respiratory tract infection [Recovered/Resolved]
  - Osteoarthritis [Not Recovered/Not Resolved]
  - Feeling abnormal [Not Recovered/Not Resolved]
  - Cholelithiasis [Recovered/Resolved]
  - Fatigue [Not Recovered/Not Resolved]
  - Infection [Recovered/Resolved]
  - Angina pectoris [Not Recovered/Not Resolved]
  - Herpes virus infection [Recovered/Resolved]
  - Dizziness [Recovered/Resolved]
  - Drug ineffective [Unknown]
  - Joint arthroplasty [Recovered/Resolved]
  - Irritable bowel syndrome [Recovered/Resolved]
  - Genital herpes [Recovered/Resolved]
  - Cystitis noninfective [Recovered/Resolved]
  - Cough [Recovered/Resolved]
  - Nasopharyngitis [Recovered/Resolved]
  - Oropharyngeal pain [Recovered/Resolved]
  - Pyrexia [Recovered/Resolved]
  - Product administration error [Unknown]
  - Stomatitis [Recovered/Resolved]
  - Mouth ulceration [Recovered/Resolved]
  - Ear infection [Recovered/Resolved]
  - Muscular weakness [Recovering/Resolving]
  - COVID-19 [Recovered/Resolved]

NARRATIVE: CASE EVENT DATE: 20180503
